FAERS Safety Report 10924426 (Version 2)
Quarter: 2015Q2

REPORT INFORMATION
  Report Type: Spontaneous
  Country: US (occurrence: US)
  Receive Date: 20150318
  Receipt Date: 20150524
  Transmission Date: 20150821
  Serious: No
  Sender: FDA-Public Use
  Company Number: US-JNJFOC-20141020955

PATIENT
  Sex: Female

DRUGS (3)
  1. NIZORAL [Suspect]
     Active Substance: KETOCONAZOLE
     Indication: SEBORRHOEIC DERMATITIS
     Route: 065
     Dates: start: 201410, end: 201410
  2. FLUOCINONIDE. [Concomitant]
     Active Substance: FLUOCINONIDE
     Indication: SEBORRHOEIC DERMATITIS
     Route: 061
  3. GENTAMICIN. [Concomitant]
     Active Substance: GENTAMICIN
     Indication: SEBORRHOEIC DERMATITIS
     Route: 061

REACTIONS (3)
  - Pruritus [Unknown]
  - Migraine [Not Recovered/Not Resolved]
  - Rash [Unknown]

NARRATIVE: CASE EVENT DATE: 2014
